FAERS Safety Report 9096110 (Version 3)
Quarter: 2013Q1

REPORT INFORMATION
  Report Type: Spontaneous
  Country: US (occurrence: US)
  Receive Date: 20130125
  Receipt Date: 20130125
  Transmission Date: 20140127
  Serious: Yes (Hospitalization, Other)
  Sender: FDA-Public Use
  Company Number: US-PFIZER INC-2013016150

PATIENT
  Age: 70 Year
  Sex: Female
  Weight: 79.37 kg

DRUGS (2)
  1. ZYVOX [Suspect]
     Indication: OSTEOMYELITIS
     Dosage: 600 MG, 2X/DAY
     Route: 048
     Dates: start: 20121120, end: 20121218
  2. PREDNISONE [Concomitant]
     Indication: RHEUMATOID ARTHRITIS
     Dosage: 5 MG, 2X/DAY

REACTIONS (8)
  - Syncope [Recovered/Resolved]
  - Asthenia [Recovered/Resolved]
  - Full blood count decreased [Recovered/Resolved]
  - Loss of consciousness [Unknown]
  - Asthenia [Unknown]
  - Platelet count decreased [Unknown]
  - Red blood cell count abnormal [Unknown]
  - White blood cell count abnormal [Unknown]
